FAERS Safety Report 15658945 (Version 2)
Quarter: 2022Q2

REPORT INFORMATION
  Report Type: Spontaneous
  Country: HR (occurrence: HR)
  Receive Date: 20181126
  Receipt Date: 20220523
  Transmission Date: 20220720
  Serious: Yes (Death, Hospitalization, Other)
  Sender: FDA-Public Use
  Company Number: HR-009507513-1809HRV010497

PATIENT
  Age: 67 Year
  Sex: Male

DRUGS (1)
  1. KEYTRUDA [Suspect]
     Active Substance: PEMBROLIZUMAB
     Indication: Lung neoplasm malignant
     Dosage: CYCLICAL (RECEIVED 2 CYCLES)
     Dates: end: 20180904

REACTIONS (5)
  - Hepatic failure [Fatal]
  - Coma hepatic [Unknown]
  - Immune-mediated hepatitis [Unknown]
  - Hepatitis [Unknown]
  - Cholelithiasis [Unknown]

NARRATIVE: CASE EVENT DATE: 20180920
